FAERS Safety Report 10095669 (Version 2)
Quarter: 2014Q2

REPORT INFORMATION
  Report Type: Spontaneous
  Country: US (occurrence: US)
  Receive Date: 20140422
  Receipt Date: 20140422
  Transmission Date: 20141212
  Serious: No
  Sender: FDA-Public Use
  Company Number: US-GILEAD-2012-0063765

PATIENT
  Age: 28 Year
  Sex: Female

DRUGS (7)
  1. LETAIRIS [Suspect]
     Indication: PULMONARY HYPERTENSION
     Dosage: 5 MG, UNK
     Route: 048
     Dates: start: 20120917, end: 20121005
  2. LETAIRIS [Suspect]
     Indication: SYSTEMIC LUPUS ERYTHEMATOSUS
  3. VIAGRA [Concomitant]
  4. AZATHIOPRINE [Concomitant]
  5. PREDNISONE [Concomitant]
  6. TRAMADOL [Concomitant]
  7. FUROSEMIDE [Concomitant]

REACTIONS (3)
  - Hepatic enzyme increased [Recovered/Resolved]
  - Fatigue [Unknown]
  - Asthenia [Unknown]
